FAERS Safety Report 5553851-4 (Version None)
Quarter: 2007Q4

REPORT INFORMATION
  Report Type: 
  Country: None (occurrence: None)
  Receive Date: 20071211
  Receipt Date: 20071130
  Transmission Date: 20080405
  Serious: Yes (Hospitalization, Other)
  Sender: FDA-Public Use
  Company Number: GXKR2007US10294

PATIENT
  Age: 55 Year
  Sex: Male

DRUGS (2)
  1. METHYLPREDNISOLONE [Suspect]
     Indication: IMMUNOSUPPRESSION
  2. TACROLIMUS [Suspect]
     Indication: IMMUNOSUPPRESSION

REACTIONS (12)
  - ACTIVITIES OF DAILY LIVING IMPAIRED [None]
  - CHROMOSOME ANALYSIS ABNORMAL [None]
  - CHRONIC MYELOID LEUKAEMIA [None]
  - DIALYSIS [None]
  - LETHARGY [None]
  - LYMPHOCYTE COUNT DECREASED [None]
  - MARROW HYPERPLASIA [None]
  - OSTEOSCLEROSIS [None]
  - PLATELET COUNT DECREASED [None]
  - REFRACTORY ANAEMIA [None]
  - RENAL FAILURE ACUTE [None]
  - WEIGHT DECREASED [None]
